FAERS Safety Report 9450473 (Version 1)
Quarter: 2013Q3

REPORT INFORMATION
  Report Type: Spontaneous
  Country: US (occurrence: None)
  Receive Date: 20130807
  Receipt Date: 20130807
  Transmission Date: 20140515
  Serious: Yes (Hospitalization)
  Sender: FDA-Public Use
  Company Number: FK201303020

PATIENT
  Age: 61 Year
  Sex: Female
  Weight: 58 kg

DRUGS (1)
  1. PACLITAXEL (MANUFACTURER UNKNOWN) (PACLITAXEL) (PACLITAXEL) [Suspect]
     Indication: NEOPLASM MALIGNANT
     Route: 042
     Dates: start: 20130603, end: 20130603

REACTIONS (4)
  - Dyspnoea [None]
  - Cough [None]
  - Hypersensitivity [None]
  - Infusion related reaction [None]
